FAERS Safety Report 9858309 (Version 2)
Quarter: 2014Q1

REPORT INFORMATION
  Report Type: Spontaneous
  Country: US (occurrence: US)
  Receive Date: 20140131
  Receipt Date: 20140131
  Transmission Date: 20141002
  Serious: Yes (Hospitalization, Other)
  Sender: FDA-Public Use
  Company Number: US-BEH-2011028415

PATIENT
  Age: 49 Year
  Sex: Female
  Weight: 62 kg

DRUGS (20)
  1. ZEMAIRA [Suspect]
     Dosage: ??-NOV-2009
     Route: 042
  2. ZEMAIRA [Suspect]
     Indication: ALPHA-1 ANTI-TRYPSIN DEFICIENCY
     Route: 042
  3. ZEMAIRA [Suspect]
     Dosage: 959 MG/ML
     Route: 042
  4. ZEMAIRA [Suspect]
     Dosage: ??-???-2013; 6.5 ML/MIN
     Route: 042
  5. ZYBAN SR [Concomitant]
  6. DOXEPIN [Concomitant]
  7. LISINOPRIL [Concomitant]
  8. ESTRADIOL [Concomitant]
  9. PREDNISONE [Concomitant]
  10. OXYGEN [Concomitant]
  11. ADVAIR 250 [Concomitant]
  12. SPIRIVA [Concomitant]
  13. ALBUTEROL [Concomitant]
  14. XOPENEX HFA [Concomitant]
  15. SODIUM CHLORIDE [Concomitant]
     Indication: PREMEDICATION
  16. PENICILLIN [Concomitant]
  17. DIPHENHYDRAMINE [Concomitant]
  18. EPI-PEN [Concomitant]
     Indication: PREMEDICATION
  19. LMX [Concomitant]
     Indication: PREMEDICATION
  20. AVELOX [Concomitant]

REACTIONS (8)
  - Transient ischaemic attack [Unknown]
  - Pulmonary embolism [Unknown]
  - Thrombosis [Unknown]
  - Pulmonary arterial hypertension [Unknown]
  - Respiratory tract infection [Unknown]
  - Upper respiratory tract infection [Unknown]
  - Fatigue [Unknown]
  - Somnolence [Unknown]
